FAERS Safety Report 13708536 (Version 1)
Quarter: 2017Q2

REPORT INFORMATION
  Report Type: Spontaneous
  Country: US (occurrence: US)
  Receive Date: 20170630
  Receipt Date: 20170630
  Transmission Date: 20170830
  Serious: Yes (Hospitalization)
  Sender: FDA-Public Use
  Company Number: US-BAUSCH-BL-2017-019283

PATIENT
  Age: 85 Year
  Sex: Female

DRUGS (3)
  1. LORAZEPAM. [Suspect]
     Active Substance: LORAZEPAM
     Indication: PRODUCT USED FOR UNKNOWN INDICATION
     Dosage: THREE TIMES A DAY OR AS NEEDED
     Route: 048
  2. ATIVAN [Suspect]
     Active Substance: LORAZEPAM
     Indication: CEREBRAL DISORDER
     Dosage: THREE TIMES A DAY OR AS NEEDED
     Route: 048
     Dates: start: 1967, end: 2014
  3. ATIVAN [Suspect]
     Active Substance: LORAZEPAM
     Dosage: THREE TIMES A DAY OR AS NEEDED
     Route: 048

REACTIONS (8)
  - Fracture [Not Recovered/Not Resolved]
  - Drug ineffective [Unknown]
  - Stress [Not Recovered/Not Resolved]
  - Drug hypersensitivity [Not Recovered/Not Resolved]
  - Treatment noncompliance [Unknown]
  - Malaise [Not Recovered/Not Resolved]
  - Emotional distress [Not Recovered/Not Resolved]
  - Off label use [Not Recovered/Not Resolved]

NARRATIVE: CASE EVENT DATE: 1967
